FAERS Safety Report 5849161-8 (Version None)
Quarter: 2008Q3

REPORT INFORMATION
  Report Type: 
  Country: None (occurrence: None)
  Receive Date: 20080818
  Receipt Date: 20080818
  Transmission Date: 20090109
  Serious: Yes (Hospitalization)
  Sender: FDA-Public Use
  Company Number: None

PATIENT
  Sex: Male
  Weight: 53.5244 kg

DRUGS (14)
  1. LENALIDOMIDE [Suspect]
     Indication: MULTIPLE MYELOMA
     Dosage: 15 MG 21 DAYS/MONTH PO
     Route: 048
     Dates: start: 20080712, end: 20080801
  2. DEXAMETHASONE TAB [Suspect]
     Dosage: 40 MG DAYS 1,8,16,+22 PO
     Route: 048
     Dates: start: 20080712, end: 20080802
  3. OXYCONTIN [Concomitant]
  4. OXYCODONE HCL [Concomitant]
  5. BACTRIM DS [Concomitant]
  6. REVLIMID [Concomitant]
  7. DEXAMETHASONE TAB [Concomitant]
  8. COLACE [Concomitant]
  9. SENOKOT [Concomitant]
  10. NEURONTIN [Concomitant]
  11. ARANESP [Concomitant]
  12. AREDIA [Concomitant]
  13. PRILOSEC [Concomitant]
  14. LYRICA [Concomitant]

REACTIONS (5)
  - HAEMOTHORAX [None]
  - OXYGEN SATURATION DECREASED [None]
  - PLEURAL EFFUSION [None]
  - PULMONARY EMBOLISM [None]
  - TREATMENT NONCOMPLIANCE [None]
